FAERS Safety Report 8144897-0 (Version None)
Quarter: 2012Q1

REPORT INFORMATION
  Report Type: 
  Country: None (occurrence: None)
  Receive Date: 20120217
  Receipt Date: 20120206
  Transmission Date: 20120608
  Serious: Yes (Hospitalization, Other)
  Sender: FDA-Public Use
  Company Number: ES-GLAXOSMITHKLINE-B0782014A

PATIENT
  Age: 65 Year
  Sex: Male

DRUGS (5)
  1. FENOFIBRATE [Concomitant]
     Dosage: 200MG PER DAY
  2. ENALAPRIL [Concomitant]
     Dosage: 40MG PER DAY
  3. ROSIGLITAZONE MALEATE AND METFORMIN HCL [Suspect]
     Indication: TYPE 2 DIABETES MELLITUS
     Dosage: 500MG FOUR TIMES PER DAY
     Route: 048
  4. ATENOLOL [Concomitant]
     Dosage: 50MG PER DAY
  5. ASPIRIN [Concomitant]
     Dosage: 30MG PER DAY

REACTIONS (9)
  - LACTIC ACIDOSIS [None]
  - VOMITING [None]
  - DIARRHOEA [None]
  - DEPRESSED LEVEL OF CONSCIOUSNESS [None]
  - TACHYPNOEA [None]
  - CARDIO-RESPIRATORY ARREST [None]
  - GENERAL PHYSICAL HEALTH DETERIORATION [None]
  - ABDOMINAL PAIN UPPER [None]
  - NAUSEA [None]
